FAERS Safety Report 7565612-5 (Version None)
Quarter: 2011Q2

REPORT INFORMATION
  Report Type: 
  Country: None (occurrence: None)
  Receive Date: 20110623
  Receipt Date: 20110608
  Transmission Date: 20111010
  Serious: Yes (Hospitalization)
  Sender: FDA-Public Use
  Company Number: FR-JNJFOC-20110604274

PATIENT
  Age: 47 Year
  Sex: Male

DRUGS (3)
  1. DEXCHLORPHENIRAMINE MALEATE [Concomitant]
     Indication: PREMEDICATION
     Route: 042
     Dates: start: 20110211
  2. REMICADE [Suspect]
     Route: 042
     Dates: start: 20110211
  3. REMICADE [Suspect]
     Indication: ANKYLOSING SPONDYLITIS
     Route: 042
     Dates: start: 20101217

REACTIONS (4)
  - MUSCLE SPASMS [None]
  - INFUSION RELATED REACTION [None]
  - CHEST PAIN [None]
  - PARAESTHESIA [None]
